FAERS Safety Report 13864031 (Version 1)
Quarter: 2017Q3

REPORT INFORMATION
  Report Type: Spontaneous
  Country: US (occurrence: US)
  Receive Date: 20170814
  Receipt Date: 20170814
  Transmission Date: 20171127
  Serious: No
  Sender: FDA-Public Use
  Company Number: US-BAYER-2017-146641

PATIENT
  Age: 87 Year
  Sex: Female
  Weight: 61 kg

DRUGS (13)
  1. ALEVE [Suspect]
     Active Substance: NAPROXEN SODIUM
     Indication: JOINT SWELLING
     Dosage: 2 DF, BID
     Route: 048
     Dates: start: 201611
  2. LISINOPRIL. [Concomitant]
     Active Substance: LISINOPRIL
     Dosage: UNK
  3. VITAMIN C [Concomitant]
     Active Substance: ASCORBIC ACID
     Dosage: UNK
  4. AMLODIPINE [Concomitant]
     Active Substance: AMLODIPINE BESYLATE
     Dosage: UNK
  5. ALEVE [Suspect]
     Active Substance: NAPROXEN SODIUM
     Indication: JOINT SWELLING
     Dosage: 2 DF, BID
     Route: 048
     Dates: start: 201611
  6. ALEVE [Suspect]
     Active Substance: NAPROXEN SODIUM
     Indication: ARTHRITIS
  7. METOPROLOL. [Concomitant]
     Active Substance: METOPROLOL
     Dosage: UNK
  8. FISH OIL [Concomitant]
     Active Substance: FISH OIL
     Dosage: UNK
  9. METHENAMINE [Concomitant]
     Active Substance: METHENAMINE
     Dosage: UNK
  10. SYNTHROID [Concomitant]
     Active Substance: LEVOTHYROXINE SODIUM
     Dosage: UNK
  11. TYLENOL [Concomitant]
     Active Substance: ACETAMINOPHEN
     Dosage: UNK
  12. VITAMIN B12 [Concomitant]
     Active Substance: CYANOCOBALAMIN
     Dosage: UNK
  13. ALEVE [Suspect]
     Active Substance: NAPROXEN SODIUM
     Indication: ARTHRITIS

REACTIONS (6)
  - Off label use [Unknown]
  - Inappropriate prescribing [Unknown]
  - Extra dose administered [Unknown]
  - Wrong technique in product usage process [Unknown]
  - Product use in unapproved indication [Unknown]
  - Off label use [Unknown]

NARRATIVE: CASE EVENT DATE: 20170713
